FAERS Safety Report 22122572 (Version 2)
Quarter: 2023Q2

REPORT INFORMATION
  Report Type: Report from Study
  Country: AU (occurrence: AU)
  Receive Date: 20230321
  Receipt Date: 20230620
  Transmission Date: 20230722
  Serious: Yes (Other)
  Sender: FDA-Public Use
  Company Number: AU-TAKEDA-2023TUS028006

PATIENT
  Age: 37 Year
  Sex: Female

DRUGS (1)
  1. VEDOLIZUMAB [Suspect]
     Active Substance: VEDOLIZUMAB
     Indication: Colitis ulcerative
     Dosage: 300 MILLIGRAM, Q4WEEKS
     Route: 042
     Dates: start: 20230107, end: 20230510

REACTIONS (4)
  - Colitis ulcerative [Unknown]
  - Loss of therapeutic response [Unknown]
  - Malaise [Unknown]
  - Stress at work [Unknown]

NARRATIVE: CASE EVENT DATE: 20230308
